FAERS Safety Report 9715790 (Version 1)
Quarter: 2013Q4

REPORT INFORMATION
  Report Type: Spontaneous
  Country: US (occurrence: US)
  Receive Date: 20131127
  Receipt Date: 20131127
  Transmission Date: 20140711
  Serious: Yes (Other)
  Sender: FDA-Public Use
  Company Number: US-MERCK-1311USA010272

PATIENT
  Age: 58 Year
  Sex: Female

DRUGS (4)
  1. JANUVIA [Suspect]
     Indication: TYPE 2 DIABETES MELLITUS
     Dosage: 100 MG, QD
     Route: 048
  2. METFORMIN [Concomitant]
  3. AMARYL [Concomitant]
  4. LOSARTAN POTASSIUM AND HYDROCHLOROTHIAZIDE TABLETS [Concomitant]

REACTIONS (1)
  - Pancreatitis [Recovered/Resolved]
